FAERS Safety Report 13403800 (Version 3)
Quarter: 2017Q2

REPORT INFORMATION
  Report Type: Report from Study
  Country: US (occurrence: US)
  Receive Date: 20170405
  Receipt Date: 20170512
  Transmission Date: 20170830
  Serious: Yes (Death, Other)
  Sender: FDA-Public Use
  Company Number: PHEH2017US009881

PATIENT
  Age: 63 Year
  Sex: Male
  Weight: 113.4 kg

DRUGS (2)
  1. VOTRIENT [Suspect]
     Active Substance: PAZOPANIB HYDROCHLORIDE
     Indication: RENAL CANCER
     Dosage: 200 MG, UNK
     Route: 065
  2. VOTRIENT [Suspect]
     Active Substance: PAZOPANIB HYDROCHLORIDE
     Dosage: 800 MG, UNK
     Route: 048
     Dates: start: 20170131, end: 20170301

REACTIONS (3)
  - Respiratory failure [Fatal]
  - Humerus fracture [Unknown]
  - Malignant pleural effusion [Fatal]

NARRATIVE: CASE EVENT DATE: 20170212
